FAERS Safety Report 24586429 (Version 1)
Quarter: 2024Q4

REPORT INFORMATION
  Report Type: Spontaneous
  Country: CA (occurrence: CA)
  Receive Date: 20241106
  Receipt Date: 20241106
  Transmission Date: 20250115
  Serious: Yes (Life-Threatening, Hospitalization)
  Sender: ORGANON
  Company Number: CA-ORGANON-O2411CAN000190

PATIENT
  Age: 74 Year
  Sex: Female
  Weight: 58 kg

DRUGS (11)
  1. EZETIMIBE [Suspect]
     Active Substance: EZETIMIBE
     Indication: Dyslipidaemia
     Dosage: 10 MILLIGRAM, QD
     Route: 048
  2. CLOTRIMAZOLE [Concomitant]
     Active Substance: CLOTRIMAZOLE
     Dosage: UNK
  3. COENZYME Q10 [Concomitant]
     Active Substance: DIETARY SUPPLEMENT\UBIDECARENONE
     Dosage: UNK
  4. DESLORATADINE [Concomitant]
     Active Substance: DESLORATADINE
     Dosage: UNK
  5. FLUCONAZOLE [Concomitant]
     Active Substance: FLUCONAZOLE
     Dosage: UNK
  6. INSULIN BEEF [Concomitant]
     Active Substance: INSULIN BEEF
  7. JARDIANCE [Concomitant]
     Active Substance: EMPAGLIFLOZIN
     Dosage: UNK
  8. METFORMIN [Concomitant]
     Active Substance: METFORMIN HYDROCHLORIDE
     Dosage: UNK
  9. RAMIPRIL [Concomitant]
     Active Substance: RAMIPRIL
     Dosage: UNK
  10. ROSUVASTATIN [Concomitant]
     Active Substance: ROSUVASTATIN
     Dosage: UNK
  11. SEMAGLUTIDE [Concomitant]
     Active Substance: SEMAGLUTIDE
     Dosage: UNK

REACTIONS (4)
  - Acute kidney injury [Unknown]
  - Anuria [Unknown]
  - Myositis [Unknown]
  - Rhabdomyolysis [Unknown]
